FAERS Safety Report 21148185 (Version 16)
Quarter: 2024Q4

REPORT INFORMATION
  Report Type: Report from Study
  Country: DE (occurrence: DE)
  Receive Date: 20220729
  Receipt Date: 20241202
  Transmission Date: 20250114
  Serious: Yes (Hospitalization)
  Sender: ROCHE
  Company Number: DE-ROCHE-3145471

PATIENT
  Age: 30 Year
  Sex: Female

DRUGS (5)
  1. OCREVUS [Suspect]
     Active Substance: OCRELIZUMAB
     Indication: Relapsing-remitting multiple sclerosis
     Dosage: THEN 600 MG ONCE EVERY 192 DAYS?LAST OCREVUS INFUSION ON 27/MAR/2023
     Route: 042
     Dates: start: 20220310
  2. STROVAC [Suspect]
     Active Substance: ESCHERICHIA COLI\ENTEROCOCCUS FAECALIS\KLEBSIELLA PNEUMONIAE\PROTEUS MIRABILIS\PROTEUS MORGANII
     Indication: Product used for unknown indication
     Dosage: SECOND VACCINATION?FIRST VACCINATION: UNKNOWN DATE
     Route: 065
  3. NABIXIMOLS [Concomitant]
     Active Substance: NABIXIMOLS
  4. DIENOGEST\ETHINYL ESTRADIOL [Concomitant]
     Active Substance: DIENOGEST\ETHINYL ESTRADIOL
     Dosage: CONTRACEPTIVE PILL
  5. HERBALS [Concomitant]
     Active Substance: HERBALS

REACTIONS (20)
  - Appendicitis [Recovered/Resolved]
  - Ovarian cyst ruptured [Recovered/Resolved]
  - Pharyngeal inflammation [Recovered/Resolved]
  - Dysphonia [Recovered/Resolved]
  - Fatigue [Recovered/Resolved]
  - C-reactive protein increased [Recovered/Resolved]
  - Body temperature increased [Recovered/Resolved]
  - Hypoaesthesia [Recovered/Resolved]
  - Infection susceptibility increased [Not Recovered/Not Resolved]
  - Muscle spasms [Recovering/Resolving]
  - Urinary tract infection [Recovered/Resolved]
  - Neuralgia [Recovered/Resolved]
  - Heart rate increased [Recovering/Resolving]
  - Blood pressure increased [Recovering/Resolving]
  - Oropharyngeal pain [Recovered/Resolved]
  - Drug intolerance [Unknown]
  - Contraindication to medical treatment [Unknown]
  - Genital infection fungal [Recovered/Resolved]
  - Oophoritis [Recovering/Resolving]
  - Influenza like illness [Not Recovered/Not Resolved]

NARRATIVE: CASE EVENT DATE: 20220502
